FAERS Safety Report 25130032 (Version 1)
Quarter: 2025Q1

REPORT INFORMATION
  Report Type: Spontaneous
  Country: CN (occurrence: CN)
  Receive Date: 20250327
  Receipt Date: 20250327
  Transmission Date: 20250409
  Serious: Yes (Hospitalization, Disabling, Other)
  Sender: Haleon PLC
  Company Number: CN-HALEON-2234795

PATIENT
  Age: 72 Year
  Sex: Female
  Weight: 55 kg

DRUGS (1)
  1. IBUPROFEN [Suspect]
     Active Substance: IBUPROFEN
     Indication: Pain
     Route: 048
     Dates: end: 20250311

REACTIONS (18)
  - Renal failure [Recovering/Resolving]
  - Palpitations [Recovering/Resolving]
  - Decreased appetite [Recovering/Resolving]
  - Chronic kidney disease [Recovering/Resolving]
  - Asthenia [Recovering/Resolving]
  - Azotaemia [Recovering/Resolving]
  - Hypocalcaemia [Recovering/Resolving]
  - Cardiac failure congestive [Recovering/Resolving]
  - Tachypnoea [Recovering/Resolving]
  - Congenital cystic kidney disease [Recovering/Resolving]
  - Hypertension [Recovering/Resolving]
  - Hyperparathyroidism secondary [Recovering/Resolving]
  - Nephrogenic anaemia [Recovering/Resolving]
  - Pleural effusion [Recovering/Resolving]
  - Polycystic liver disease [Recovering/Resolving]
  - Cardiac failure [Recovering/Resolving]
  - Inappropriate schedule of product administration [Unknown]
  - Coronary artery disease [Recovering/Resolving]

NARRATIVE: CASE EVENT DATE: 20250312
